FAERS Safety Report 5156770-0 (Version None)
Quarter: 2006Q4

REPORT INFORMATION
  Report Type: 
  Country: None (occurrence: None)
  Receive Date: 20061115
  Receipt Date: 20061030
  Transmission Date: 20070319
  Serious: Yes (Death)
  Sender: FDA-Public Use
  Company Number: T04-SWE-07682-01

PATIENT
  Age: 83 Year
  Sex: Female
  Weight: 70 kg

DRUGS (7)
  1. MEMANTINE HCL [Suspect]
     Indication: DEMENTIA ALZHEIMER'S TYPE
     Dosage: 20 MG QD PO
     Route: 048
     Dates: start: 20030725, end: 20041114
  2. BEHEPAN (CYANOCOBALAMIN) [Concomitant]
  3. FOLACIN [Concomitant]
  4. KATAIPOS D [Concomitant]
  5. OXASCAND (OXAZEPAM) [Concomitant]
  6. HEMINEURIN (CLOMETHIAZOLE) [Concomitant]
  7. ZOPLIKON [Concomitant]

REACTIONS (15)
  - AGGRESSION [None]
  - ARTERIOSCLEROSIS [None]
  - CARDIOVASCULAR DISORDER [None]
  - FALL [None]
  - GASTRIC DISORDER [None]
  - HALLUCINATION [None]
  - NEPHROSCLEROSIS [None]
  - ORAL INTAKE REDUCED [None]
  - PULMONARY CONGESTION [None]
  - PULMONARY HAEMORRHAGE [None]
  - REFUSAL OF TREATMENT BY PATIENT [None]
  - RESTLESSNESS [None]
  - SMALL INTESTINE GANGRENE [None]
  - SUDDEN DEATH [None]
  - UTERINE LEIOMYOMA [None]
